FAERS Safety Report 21965925 (Version 1)
Quarter: 2023Q1

REPORT INFORMATION
  Report Type: Spontaneous
  Country: SE (occurrence: SE)
  Receive Date: 20230208
  Receipt Date: 20230208
  Transmission Date: 20230418
  Serious: Yes (Other)
  Sender: FDA-Public Use
  Company Number: None

PATIENT
  Age: 58 Year
  Sex: Female

DRUGS (18)
  1. INSULIN LISPRO [Suspect]
     Active Substance: INSULIN LISPRO
     Indication: Hyperglycaemia
     Dosage: 8 IU
     Route: 058
     Dates: start: 20230113, end: 20230113
  2. CHOLECALCIFEROL [Concomitant]
     Active Substance: CHOLECALCIFEROL
     Dosage: 800 IU IN THE MORNING.
     Dates: start: 20210414
  3. TOUJEO [Concomitant]
     Active Substance: INSULIN GLARGINE
     Dosage: 22 IU, QD
     Dates: start: 20211018
  4. MESTINON [Concomitant]
     Active Substance: PYRIDOSTIGMINE BROMIDE
     Dosage: 240 MG, QD
     Dates: start: 20171128
  5. EPIPEN [EPINEPHRINE] [Concomitant]
     Dosage: UNK
     Dates: start: 20171128
  6. HYDROXOCOBALAMIN ALTERNOVA [Concomitant]
     Dosage: 1 ML, Q2M
     Dates: start: 20211223
  7. METFORMIN HYDROCHLORIDE [Concomitant]
     Active Substance: METFORMIN HYDROCHLORIDE
     Dosage: 2000 MG, QD
     Dates: start: 20211019
  8. INNOVAIR [Concomitant]
     Active Substance: BECLOMETHASONE DIPROPIONATE\FORMOTEROL
     Dosage: UNK, QD
     Dates: start: 20171128
  9. MONTELUKAST\MONTELUKAST SODIUM [Concomitant]
     Active Substance: MONTELUKAST\MONTELUKAST SODIUM
     Dosage: 10 MG, QD
     Dates: start: 20190319
  10. AMITRIPTYLINE [Concomitant]
     Active Substance: AMITRIPTYLINE
     Dosage: 75 MG, QD
     Dates: start: 20171128
  11. SPIRIVA RESPIMAT [Concomitant]
     Active Substance: TIOTROPIUM BROMIDE
     Dosage: 5 UG, QD
     Dates: start: 20190319
  12. OXAZEPAM [Concomitant]
     Active Substance: OXAZEPAM
     Dosage: 10 MG
     Dates: start: 20171128
  13. ZOMIG [Concomitant]
     Active Substance: ZOLMITRIPTAN
     Dosage: UNK, QD
     Dates: start: 20181009
  14. DIMETIKON [Concomitant]
     Dosage: 800 MG, QD
     Dates: start: 20171128
  15. ALBUTEROL SULFATE [Concomitant]
     Active Substance: ALBUTEROL SULFATE
     Dosage: UNK
     Dates: start: 20171128
  16. ESOMEPRAZOLE KRKA [ESOMEPRAZOLE] [Concomitant]
     Dosage: 40 MG
     Dates: start: 20171128
  17. ALBUTEROL SULFATE\IPRATROPIUM BROMIDE [Concomitant]
     Active Substance: ALBUTEROL SULFATE\IPRATROPIUM BROMIDE
     Dosage: 0.5 MG/2.5 MG PER 2.5 ML AS NEEDED.
     Dates: start: 20171128
  18. INDERAL [Concomitant]
     Active Substance: PROPRANOLOL HYDROCHLORIDE
     Dosage: 160 MG, QD
     Dates: start: 20170706

REACTIONS (1)
  - Urticaria [Recovered/Resolved]

NARRATIVE: CASE EVENT DATE: 20230113
